FAERS Safety Report 11255791 (Version 2)
Quarter: 2015Q3

REPORT INFORMATION
  Report Type: Spontaneous
  Country: US (occurrence: US)
  Receive Date: 20150709
  Receipt Date: 20150804
  Transmission Date: 20151125
  Serious: Yes (Hospitalization)
  Sender: FDA-Public Use
  Company Number: US-AUROBINDO-AUR-APL-2015-05720

PATIENT
  Age: 68 Year
  Sex: Male

DRUGS (1)
  1. TRIMETHOPRIM+SULFAMETHOXAZOLE [Suspect]
     Active Substance: SULFAMETHOXAZOLE\TRIMETHOPRIM
     Indication: CELLULITIS
     Route: 065

REACTIONS (19)
  - Quadranopia [Recovered/Resolved]
  - Pleural effusion [Recovered/Resolved]
  - Rash pruritic [Recovered/Resolved]
  - Rash macular [Recovered/Resolved]
  - Dyspnoea [Recovered/Resolved]
  - Epistaxis [Recovered/Resolved]
  - Post transfusion purpura [Recovered/Resolved]
  - Transient ischaemic attack [Recovered/Resolved]
  - Chills [Recovered/Resolved]
  - Thrombocytopenia [Recovered/Resolved]
  - Azotaemia [Recovered/Resolved]
  - Chest discomfort [Recovered/Resolved]
  - Mouth haemorrhage [Recovered/Resolved]
  - Anaemia [Recovered/Resolved]
  - International normalised ratio [Recovered/Resolved]
  - Pericardial effusion [Recovered/Resolved]
  - Platelet count decreased [Recovered/Resolved]
  - Hyperkalaemia [Recovered/Resolved]
  - Acute myocardial infarction [Recovered/Resolved]
